FAERS Safety Report 20831048 (Version 1)
Quarter: 2022Q2

REPORT INFORMATION
  Report Type: Spontaneous
  Country: US (occurrence: US)
  Receive Date: 20220515
  Receipt Date: 20220515
  Transmission Date: 20220721
  Serious: No
  Sender: FDA-Public Use
  Company Number: US-BRISTOL-MYERS SQUIBB COMPANY-2022-032433

PATIENT
  Age: 80 Year
  Sex: Male

DRUGS (1)
  1. REVLIMID [Suspect]
     Active Substance: LENALIDOMIDE
     Indication: Plasma cell myeloma
     Dosage: FREQUENCY : TAKE 1 CAPSULE (10MG TOTAL) BY MOUTH EVERY DAY ON DAYS 1-14 OF EACH 21 DAY CYCLE
     Route: 048
     Dates: start: 20220413

REACTIONS (2)
  - Pruritus [Not Recovered/Not Resolved]
  - Constipation [Not Recovered/Not Resolved]
